FAERS Safety Report 6808269-0 (Version None)
Quarter: 2010Q2

REPORT INFORMATION
  Report Type: 
  Country: None (occurrence: None)
  Receive Date: 20100629
  Receipt Date: 20090415
  Transmission Date: 20101027
  Serious: No
  Sender: FDA-Public Use
  Company Number: US-PFIZER INC-2009199524

PATIENT
  Sex: Female
  Weight: 109 kg

DRUGS (5)
  1. TIKOSYN [Suspect]
     Indication: ATRIAL FIBRILLATION
     Dosage: 500 UG, 2X/DAY
     Dates: start: 20090407
  2. CARTIA XT [Concomitant]
     Indication: HYPERTENSION
     Dosage: UNK
  3. PREDNISONE [Concomitant]
     Indication: ARTHRITIS
     Dosage: UNK
  4. OMEPRAZOLE [Concomitant]
     Indication: GASTRIC DISORDER
     Dosage: UNK
  5. WARFARIN SODIUM [Concomitant]
     Dosage: UNK

REACTIONS (2)
  - HEART RATE INCREASED [None]
  - PALPITATIONS [None]
